FAERS Safety Report 5508137-0 (Version None)
Quarter: 2007Q4

REPORT INFORMATION
  Report Type: 
  Country: None (occurrence: None)
  Receive Date: 20071106
  Receipt Date: 20071106
  Transmission Date: 20080405
  Serious: Yes (Hospitalization)
  Sender: FDA-Public Use
  Company Number: US-GENENTECH-250168

PATIENT
  Sex: Female
  Weight: 84.807 kg

DRUGS (15)
  1. RAPTIVA [Suspect]
     Indication: PSORIASIS
     Dosage: 0.6 UNK, SINGLE
     Route: 058
     Dates: start: 20071011, end: 20071011
  2. METHOTREXATE [Concomitant]
     Indication: DRUG USE FOR UNKNOWN INDICATION
     Dosage: 20 MG, 1/WEEK
  3. PREDNISONE [Concomitant]
     Indication: DRUG USE FOR UNKNOWN INDICATION
     Dosage: 30 MG, QD
  4. FOSAMAX [Concomitant]
     Indication: DRUG USE FOR UNKNOWN INDICATION
     Dosage: 70 MG, 1/WEEK
  5. LEUCOVORIN [Concomitant]
     Indication: DRUG USE FOR UNKNOWN INDICATION
     Dosage: UNK, 1/WEEK
  6. IRON [Concomitant]
     Indication: DRUG USE FOR UNKNOWN INDICATION
     Dosage: 300 MG, BID
  7. FOLIC ACID [Concomitant]
     Indication: DRUG USE FOR UNKNOWN INDICATION
     Dosage: 1 MG, QD
  8. OS-CAL [Concomitant]
     Indication: DRUG USE FOR UNKNOWN INDICATION
     Dosage: UNK, QD
  9. HYDROCORTONE [Concomitant]
     Indication: DRUG USE FOR UNKNOWN INDICATION
  10. FLUOCINOLONE ACETONIDE [Concomitant]
     Indication: DRUG USE FOR UNKNOWN INDICATION
  11. AQUAPHOR OINTMENT [Concomitant]
     Indication: DRUG USE FOR UNKNOWN INDICATION
  12. LEXAPRO [Concomitant]
     Indication: DRUG USE FOR UNKNOWN INDICATION
     Dosage: 10 MG, QD
  13. LOPRESSOR [Concomitant]
     Indication: DRUG USE FOR UNKNOWN INDICATION
     Dosage: 50 MG, QD
  14. ATARAX [Concomitant]
     Indication: PRURITUS
     Dosage: UNK, PRN
  15. OXYCODONE HCL [Concomitant]
     Indication: PAIN
     Dosage: UNK, PRN

REACTIONS (1)
  - LIVER DISORDER [None]
